FAERS Safety Report 20894247 (Version 1)
Quarter: 2022Q2

REPORT INFORMATION
  Report Type: Spontaneous
  Country: US (occurrence: US)
  Receive Date: 20220531
  Receipt Date: 20220531
  Transmission Date: 20220721
  Serious: Yes (Other)
  Sender: FDA-Public Use
  Company Number: US-SA-SAC20220526001300

PATIENT
  Age: 54 Year
  Sex: Male

DRUGS (1)
  1. ZANTAC [Suspect]
     Active Substance: RANITIDINE HYDROCHLORIDE
     Dosage: 75 MG, QD
     Dates: start: 198301, end: 201701

REACTIONS (4)
  - Colorectal cancer stage IV [Unknown]
  - Renal cancer [Unknown]
  - Hepatic cancer [Unknown]
  - Testis cancer [Unknown]

NARRATIVE: CASE EVENT DATE: 20150101
